FAERS Safety Report 11936995 (Version 2)
Quarter: 2016Q1

REPORT INFORMATION
  Report Type: Spontaneous
  Country: US (occurrence: US)
  Receive Date: 20160121
  Receipt Date: 20160202
  Transmission Date: 20160526
  Serious: No
  Sender: FDA-Public Use
  Company Number: US-009507513-1601USA006953

PATIENT
  Age: 59 Year
  Sex: Male

DRUGS (3)
  1. JANUMET XR [Suspect]
     Active Substance: METFORMIN HYDROCHLORIDE\SITAGLIPTIN PHOSPHATE
     Indication: DIABETES MELLITUS
     Dosage: 1 TABLET ONCE A DAY
     Route: 048
     Dates: start: 201512
  2. GLIMEPIRIDE. [Concomitant]
     Active Substance: GLIMEPIRIDE
  3. COZAAR [Concomitant]
     Active Substance: LOSARTAN POTASSIUM

REACTIONS (3)
  - Abdominal discomfort [Not Recovered/Not Resolved]
  - Inappropriate schedule of drug administration [Unknown]
  - Diarrhoea [Not Recovered/Not Resolved]

NARRATIVE: CASE EVENT DATE: 201512
